FAERS Safety Report 7973994-5 (Version None)
Quarter: 2011Q4

REPORT INFORMATION
  Report Type: 
  Country: None (occurrence: None)
  Receive Date: 20111213
  Receipt Date: 20111026
  Transmission Date: 20120403
  Serious: Yes (Other)
  Sender: FDA-Public Use
  Company Number: BR-GLAXOSMITHKLINE-A0953801A

PATIENT
  Age: 50 Year
  Sex: Female
  Weight: 50 kg

DRUGS (1)
  1. LAMICTAL [Suspect]
     Indication: NERVOUS SYSTEM DISORDER
     Route: 065

REACTIONS (4)
  - JAUNDICE [None]
  - ABDOMINAL PAIN [None]
  - HEPATITIS [None]
  - TRANSAMINASES INCREASED [None]
